FAERS Safety Report 6126761-1 (Version None)
Quarter: 2009Q1

REPORT INFORMATION
  Report Type: 
  Country: None (occurrence: None)
  Receive Date: 20090320
  Receipt Date: 20090317
  Transmission Date: 20090719
  Serious: Yes (Other)
  Sender: FDA-Public Use
  Company Number: US-WYE-H08627609

PATIENT
  Sex: Female

DRUGS (1)
  1. PREMARIN [Suspect]

REACTIONS (4)
  - AMNESIA [None]
  - CARDIAC FAILURE CONGESTIVE [None]
  - MUSCLE SPASMS [None]
  - THROMBOSIS [None]
